FAERS Safety Report 7338416-6 (Version None)
Quarter: 2011Q1

REPORT INFORMATION
  Report Type: 
  Country: None (occurrence: None)
  Receive Date: 20110308
  Receipt Date: 20110225
  Transmission Date: 20110831
  Serious: Yes (Hospitalization, Disabling)
  Sender: FDA-Public Use
  Company Number: US-JNJFOC-20110207937

PATIENT
  Sex: Male
  Weight: 118.39 kg

DRUGS (6)
  1. METHOTREXATE [Concomitant]
     Indication: CROHN'S DISEASE
  2. ANTIHISTAMINE [Concomitant]
     Indication: PREMEDICATION
  3. REMICADE [Suspect]
     Route: 042
  4. ACETAMINOPHEN [Concomitant]
     Indication: PREMEDICATION
  5. REMICADE [Suspect]
     Dosage: TOTAL OF 48 DOSES
     Route: 042
  6. REMICADE [Suspect]
     Indication: CROHN'S DISEASE
     Dosage: 3 DOSES PRIOR TO REGISTRATION
     Route: 042

REACTIONS (2)
  - BRADYCARDIA [None]
  - CEREBRAL INFARCTION [None]
